FAERS Safety Report 5201486-5 (Version None)
Quarter: 2006Q4

REPORT INFORMATION
  Report Type: 
  Country: None (occurrence: None)
  Receive Date: 20061004
  Receipt Date: 20060804
  Transmission Date: 20070319
  Serious: No
  Sender: FDA-Public Use
  Company Number: US200607003346

PATIENT
  Sex: Female

DRUGS (4)
  1. ALIMTA [Suspect]
     Indication: NON-SMALL CELL LUNG CANCER STAGE IV
     Dosage: INTRAVENOUS
     Route: 042
  2. FOLIC ACID [Concomitant]
  3. CYANOCOBALAMIN [Concomitant]
  4. DEXAMETHASONE TAB [Concomitant]

REACTIONS (1)
  - NAIL DISORDER [None]
